FAERS Safety Report 11352945 (Version 1)
Quarter: 2015Q3

REPORT INFORMATION
  Report Type: Spontaneous
  Country: US (occurrence: US)
  Receive Date: 20150807
  Receipt Date: 20150807
  Transmission Date: 20151125
  Serious: No
  Sender: FDA-Public Use
  Company Number: US-JNJFOC-20150214453

PATIENT

DRUGS (1)
  1. ROGAINE [Suspect]
     Active Substance: MINOXIDIL
     Indication: PRODUCT USED FOR UNKNOWN INDICATION
     Route: 065

REACTIONS (7)
  - Skin wrinkling [Unknown]
  - Dry skin [Unknown]
  - Visual impairment [Unknown]
  - Mass [Unknown]
  - Vision blurred [Unknown]
  - Neoplasm skin [Unknown]
  - Fatigue [Unknown]
